FAERS Safety Report 5896998-5 (Version None)
Quarter: 2008Q3

REPORT INFORMATION
  Report Type: 
  Country: None (occurrence: None)
  Receive Date: 20080924
  Receipt Date: 20080709
  Transmission Date: 20090109
  Serious: Yes (Hospitalization)
  Sender: FDA-Public Use
  Company Number: US-ASTRAZENECA-2008UW02847

PATIENT
  Age: 52 Year
  Sex: Male
  Weight: 145.1 kg

DRUGS (7)
  1. SEROQUEL [Suspect]
     Indication: BIPOLAR DISORDER
     Route: 048
     Dates: start: 20020201, end: 20060305
  2. SEROQUEL [Suspect]
     Indication: INSOMNIA
     Route: 048
     Dates: start: 20020201, end: 20060305
  3. GEODON [Concomitant]
  4. ZYPREXA [Concomitant]
     Dosage: 10 MG, 20 MG
  5. TRAZODONE HCL [Concomitant]
     Dates: start: 19980101
  6. CITALOPRAM HYDROBROMIDE [Concomitant]
     Dates: start: 19980101
  7. SYMLIN [Concomitant]
     Route: 030

REACTIONS (8)
  - ANXIETY [None]
  - BLOOD CHOLESTEROL INCREASED [None]
  - BLOOD TRIGLYCERIDES INCREASED [None]
  - CARDIAC DISORDER [None]
  - DEPRESSION [None]
  - DIABETES MELLITUS [None]
  - OBESITY [None]
  - THYROID DISORDER [None]
